FAERS Safety Report 18544492 (Version 1)
Quarter: 2020Q4

REPORT INFORMATION
  Report Type: Spontaneous
  Country: ES (occurrence: ES)
  Receive Date: 20201125
  Receipt Date: 20201125
  Transmission Date: 20210114
  Serious: Yes (Life-Threatening, Hospitalization, Other)
  Sender: FDA-Public Use
  Company Number: ES-AUROBINDO-AUR-APL-2017-10276

PATIENT
  Age: 2 Month
  Sex: Female
  Weight: 4.7 kg

DRUGS (5)
  1. GLUCOSE [Suspect]
     Active Substance: DEXTROSE
     Dosage: 50 MG/KG IN 500ML OF 5% GLUCOSE OVER 4 HOURS
     Route: 065
  2. PARACETAMOL [Suspect]
     Active Substance: ACETAMINOPHEN
     Indication: PYREXIA
     Dosage: 500 MILLIGRAM, 3 TIMES A DAY
     Route: 065
  3. ACETYLCYSTEINE. [Suspect]
     Active Substance: ACETYLCYSTEINE
     Indication: PRODUCT USED FOR UNKNOWN INDICATION
     Dosage: UNK
     Route: 042
  4. GLUCOSE [Suspect]
     Active Substance: DEXTROSE
     Dosage: 100 MILLIGRAM/KILOGRAM MG/KG IN 1 OOOML OF 5% GLUCOSE OVER THE SUBSEQUENT 16 HOURS
     Route: 065
  5. GLUCOSE [Suspect]
     Active Substance: DEXTROSE
     Indication: PRODUCT USED FOR UNKNOWN INDICATION
     Dosage: 150 MG/KG LOADING DOSE IN 200ML OF 5% GLUCOSE OVER 15 MINUTES
     Route: 065

REACTIONS (9)
  - Toxicity to various agents [Recovered/Resolved]
  - Analgesic drug level above therapeutic [Recovered/Resolved]
  - Tonic convulsion [Recovered/Resolved]
  - Generalised tonic-clonic seizure [Recovered/Resolved]
  - Overdose [Recovered/Resolved]
  - Hepatic encephalopathy prophylaxis [Recovered/Resolved]
  - Hyponatraemia [Recovered/Resolved]
  - Medication error [Recovered/Resolved]
  - Altered state of consciousness [Recovered/Resolved]
